FAERS Safety Report 23441889 (Version 2)
Quarter: 2024Q1

REPORT INFORMATION
  Report Type: Spontaneous
  Country: GB (occurrence: GB)
  Receive Date: 20240125
  Receipt Date: 20240226
  Transmission Date: 20240409
  Serious: Yes (Hospitalization)
  Sender: FDA-Public Use
  Company Number: GB-STERISCIENCE B.V.-2024-ST-000038

PATIENT
  Age: 3 Decade
  Sex: Female

DRUGS (15)
  1. ONDANSETRON [Suspect]
     Active Substance: ONDANSETRON
     Indication: Antiemetic supportive care
     Dosage: 4 MILLIGRAM
     Route: 042
  2. CARBOPROST [Concomitant]
     Active Substance: CARBOPROST
     Indication: Postpartum haemorrhage
     Dosage: 250 MICROGRAM STAT
     Route: 030
  3. CARBOPROST [Concomitant]
     Active Substance: CARBOPROST
     Dosage: UNK
     Route: 065
  4. SYNTOCINON [Concomitant]
     Active Substance: OXYTOCIN
     Indication: Labour induction
     Dosage: UNK
     Route: 042
  5. LEVOBUPIVACAINE [Concomitant]
     Active Substance: LEVOBUPIVACAINE
     Indication: Epidural analgesia
     Dosage: CON: 0.5 % AT 4 ML
     Route: 065
  6. LEVOBUPIVACAINE [Concomitant]
     Active Substance: LEVOBUPIVACAINE
     Dosage: CON: 0.1 % AT 10 ML
     Route: 065
  7. FENTANYL [Concomitant]
     Active Substance: FENTANYL\FENTANYL CITRATE
     Indication: Epidural analgesia
     Dosage: 20 MICROGRAM, EVERY 30 MINUTES
     Route: 065
  8. LIDOCAINE [Concomitant]
     Active Substance: LIDOCAINE
     Indication: Local anaesthesia
     Dosage: 10 ML VIA PERINEAL INFILTRATION
     Route: 065
  9. OXYTOCIN [Concomitant]
     Active Substance: OXYTOCIN
     Indication: Postpartum haemorrhage
     Dosage: AT 10 IU STAT DOSE,AT A RATE OF 10 IU/HOUR
     Route: 030
  10. OXYTOCIN [Concomitant]
     Active Substance: OXYTOCIN
     Dosage: AT 40 IU STAT DOSE,AT A RATE OF 10 IU/HOUR
     Route: 042
  11. ERGONOVINE\OXYTOCIN [Concomitant]
     Active Substance: ERGONOVINE\OXYTOCIN
     Indication: Postpartum haemorrhage
     Dosage: 5 IU/500MCG STAT DOSE
     Route: 065
  12. MISOPROSTOL [Concomitant]
     Active Substance: MISOPROSTOL
     Indication: Postpartum haemorrhage
     Dosage: 1000 MICROGRAM
     Route: 054
  13. TRANEXAMIC ACID [Concomitant]
     Active Substance: TRANEXAMIC ACID
     Indication: Postpartum haemorrhage
     Dosage: 1 GRAM STAT DOSE
     Route: 042
  14. CEFUROXIME [Concomitant]
     Active Substance: CEFUROXIME
     Indication: Antibiotic prophylaxis
     Dosage: UNK
     Route: 065
  15. METRONIDAZOLE [Concomitant]
     Active Substance: METRONIDAZOLE
     Indication: Antibiotic prophylaxis
     Dosage: UNK
     Route: 065

REACTIONS (1)
  - Dyskinesia [Recovered/Resolved]
